FAERS Safety Report 5017773-X (Version None)
Quarter: 2006Q2

REPORT INFORMATION
  Report Type: 
  Country: None (occurrence: None)
  Receive Date: 20060530
  Receipt Date: 20050516
  Transmission Date: 20061013
  Serious: Yes (Life-Threatening)
  Sender: FDA-Public Use
  Company Number: 2005076289

PATIENT
  Age: 22 Year
  Sex: Male

DRUGS (3)
  1. LYRICA [Suspect]
     Indication: EPILEPSY
     Dosage: 450 MG (150 MG, 3 IN 1 D), ORAL
     Route: 048
     Dates: start: 20050101, end: 20050401
  2. LEVETIRACETAM [Concomitant]
  3. PHENYTOIN [Concomitant]

REACTIONS (3)
  - BALANCE DISORDER [None]
  - DEPRESSION SUICIDAL [None]
  - SPEECH DISORDER [None]
